FAERS Safety Report 20617303 (Version 1)
Quarter: 2022Q1

REPORT INFORMATION
  Report Type: Spontaneous
  Country: US (occurrence: None)
  Receive Date: 20220320
  Receipt Date: 20220320
  Transmission Date: 20220424
  Serious: Yes (Life-Threatening, Disabling, Other)
  Sender: FDA-Public Use
  Company Number: None

PATIENT
  Age: 32 Year
  Sex: Female
  Weight: 72.57 kg

DRUGS (1)
  1. MONTELUKAST [Suspect]
     Active Substance: MONTELUKAST SODIUM
     Indication: Asthma

REACTIONS (9)
  - Impaired work ability [None]
  - Apathy [None]
  - Intentional overdose [None]
  - Depression [None]
  - Anxiety [None]
  - Irritability [None]
  - Aggression [None]
  - Disturbance in attention [None]
  - Speech disorder [None]

NARRATIVE: CASE EVENT DATE: 20191101
